FAERS Safety Report 15135306 (Version 1)
Quarter: 2018Q3

REPORT INFORMATION
  Report Type: Spontaneous
  Country: DE (occurrence: DE)
  Receive Date: 20180712
  Receipt Date: 20180712
  Transmission Date: 20181010
  Serious: Yes (Death)
  Sender: FDA-Public Use
  Company Number: DE-PFIZER INC-2018278622

PATIENT
  Age: 34 Year
  Sex: Female
  Weight: 65 kg

DRUGS (9)
  1. DOXORUBICIN HCL [Suspect]
     Active Substance: DOXORUBICIN HYDROCHLORIDE
     Indication: SOFT TISSUE SARCOMA
     Dosage: 2 DF, SINGLE
  2. ELIQUIS [Concomitant]
     Active Substance: APIXABAN
     Indication: PULMONARY EMBOLISM
     Dosage: 10 MG, 1X/DAY, APPLICATION FOR MONTHS
     Route: 048
  3. FENTANYL. [Concomitant]
     Active Substance: FENTANYL
     Indication: PAIN
     Dosage: 150 UG EVERY HOUR, APPLICATION FOR MONTHS
     Route: 062
  4. PANTOPRAZOL [Concomitant]
     Active Substance: PANTOPRAZOLE SODIUM
     Indication: PROPHYLAXIS
     Dosage: 40 MG, 1X/DAY, APPLICATION FOR MONTHS
     Route: 048
  5. TORASEMID [Concomitant]
     Active Substance: TORSEMIDE
     Indication: OEDEMA
     Dosage: 1 DF, 1X/DAY, APPLICATION FOR WEEKS
     Route: 048
  6. SPASMEX /00376202/ [Concomitant]
     Active Substance: TROSPIUM CHLORIDE
     Indication: MICTURITION DISORDER
     Dosage: 45 MG, 1X/DAY, APPLICATION FOR MONTHS
     Route: 048
  7. LARTRUVO [Suspect]
     Active Substance: OLARATUMAB
     Indication: SOFT TISSUE SARCOMA
     Dosage: 2 DF, SINGLE
  8. VENLAFAXIN [Concomitant]
     Active Substance: VENLAFAXINE HYDROCHLORIDE
     Indication: DEPRESSION
     Dosage: 225 MG, 1X/DAY, APPLICATION FOR MONTHS
     Route: 048
  9. DEXAMETHASONE. [Concomitant]
     Active Substance: DEXAMETHASONE
     Indication: PROPHYLAXIS
     Dosage: 4 MG, 1X/DAY, APPLICATION FOR WEEKS
     Route: 048

REACTIONS (4)
  - Hypoaesthesia [Fatal]
  - Paraparesis [Fatal]
  - Monoparesis [Fatal]
  - Diaphragmatic paralysis [Fatal]

NARRATIVE: CASE EVENT DATE: 201711
